FAERS Safety Report 16819961 (Version 1)
Quarter: 2019Q3

REPORT INFORMATION
  Report Type: Spontaneous
  Country: US (occurrence: US)
  Receive Date: 20190918
  Receipt Date: 20190918
  Transmission Date: 20191005
  Serious: No
  Sender: FDA-Public Use
  Company Number: US-JNJFOC-20190905225

PATIENT
  Sex: Male

DRUGS (1)
  1. WOMENS ROGAINE UNSCENTED [Suspect]
     Active Substance: MINOXIDIL
     Indication: MADAROSIS
     Dosage: VERY SMALL AMOUNT ON FINGERTIPS
     Route: 061

REACTIONS (7)
  - Intentional product misuse [Unknown]
  - Expired product administered [Unknown]
  - Product use in unapproved indication [Unknown]
  - Poor quality product administered [Unknown]
  - Product administered at inappropriate site [Unknown]
  - Product use issue [Unknown]
  - Madarosis [Not Recovered/Not Resolved]
